FAERS Safety Report 8288919-5 (Version None)
Quarter: 2012Q2

REPORT INFORMATION
  Report Type: 
  Country: None (occurrence: None)
  Receive Date: 20120417
  Receipt Date: 20120409
  Transmission Date: 20120825
  Serious: Yes (Other)
  Sender: FDA-Public Use
  Company Number: US-BAYER-2011-039547

PATIENT
  Age: 24 Year
  Sex: Female
  Weight: 111.11 kg

DRUGS (7)
  1. YASMIN [Suspect]
     Indication: MENSTRUATION IRREGULAR
     Dosage: UNK
     Dates: start: 20060126, end: 20060409
  2. YASMIN [Suspect]
     Indication: MENORRHAGIA
  3. ZOLOFT [Concomitant]
     Indication: DEPRESSION
     Dosage: 200 MG, QD
     Route: 048
     Dates: start: 20031001, end: 20060701
  4. PROMETHAZINE [Concomitant]
     Dosage: 25 UNK, UNK
     Route: 048
  5. NITROFURANTOIN [Concomitant]
     Route: 048
  6. ACETAMINOPHEN AND HYDROCODONE BITARTRATE [Concomitant]
     Indication: PAIN
     Dosage: UNK UNK, PRN
     Route: 048
  7. POLYMYXIN B SULFATE [POLYMYXIN B SULFATE,TRIMETHOPRIM] [Concomitant]
     Indication: ANTIBIOTIC THERAPY
     Dosage: 1 U, QD
     Route: 048

REACTIONS (14)
  - CEREBROVASCULAR ACCIDENT [None]
  - VISUAL FIELD DEFECT [None]
  - ANXIETY [None]
  - SCOTOMA [None]
  - EMOTIONAL DISTRESS [None]
  - CEREBRAL INFARCTION [None]
  - EYE DISCHARGE [None]
  - HEADACHE [None]
  - PAIN [None]
  - DIPLOPIA [None]
  - OCULAR HYPERAEMIA [None]
  - VISION BLURRED [None]
  - VITREOUS FLOATERS [None]
  - BIPOLAR DISORDER [None]
